FAERS Safety Report 5616445-8 (Version None)
Quarter: 2008Q1

REPORT INFORMATION
  Report Type: 
  Country: None (occurrence: None)
  Receive Date: 20080207
  Receipt Date: 20080129
  Transmission Date: 20080703
  Serious: Yes (Hospitalization)
  Sender: FDA-Public Use
  Company Number: US-ELI_LILLY_AND_COMPANY-US200801000375

PATIENT
  Sex: Female

DRUGS (3)
  1. EVISTA [Suspect]
     Dosage: UNK, UNK
     Dates: start: 19980101
  2. FORTEO [Suspect]
     Dosage: UNK, UNK
     Dates: start: 20070502
  3. DILTIAZEM [Concomitant]

REACTIONS (1)
  - OSTEOARTHRITIS [None]
